FAERS Safety Report 5406978-1 (Version None)
Quarter: 2007Q3

REPORT INFORMATION
  Report Type: 
  Country: None (occurrence: None)
  Receive Date: 20070802
  Receipt Date: 20070704
  Transmission Date: 20080115
  Serious: Yes (Life-Threatening, Hospitalization)
  Sender: FDA-Public Use
  Company Number: 6026985

PATIENT
  Age: 42 Year
  Sex: Male

DRUGS (3)
  1. AMLODIPINE [Suspect]
     Indication: INTENTIONAL OVERDOSE
     Dosage: (1 IN 1 ONCE)
     Route: 048
  2. MEFENAMIC ACID [Concomitant]
  3. CHLORTHALIDONE [Concomitant]

REACTIONS (12)
  - ALCOHOL USE [None]
  - CARDIOMEGALY [None]
  - EJECTION FRACTION DECREASED [None]
  - HYPOTENSION [None]
  - INTENTIONAL OVERDOSE [None]
  - LEUKOCYTOSIS [None]
  - NAUSEA [None]
  - OLIGURIA [None]
  - POISONING [None]
  - PULMONARY OEDEMA [None]
  - SUICIDE ATTEMPT [None]
  - VOMITING [None]
